FAERS Safety Report 24970525 (Version 2)
Quarter: 2025Q1

REPORT INFORMATION
  Report Type: Spontaneous
  Country: US (occurrence: US)
  Receive Date: 20250214
  Receipt Date: 20250310
  Transmission Date: 20250409
  Serious: Yes (Hospitalization, Other)
  Sender: BAYER HEALTHCARE LLC
  Company Number: US-BAYER-2025A021356

PATIENT
  Age: 60 Year
  Sex: Male

DRUGS (1)
  1. MIRALAX [Suspect]
     Active Substance: POLYETHYLENE GLYCOL 3350
     Indication: Lupus nephritis
     Dates: end: 20220101

REACTIONS (8)
  - Systemic lupus erythematosus [Not Recovered/Not Resolved]
  - Colitis [None]
  - Chronic kidney disease [None]
  - Irritable bowel syndrome [None]
  - White blood cell disorder [None]
  - Restless legs syndrome [None]
  - Toxicity to various agents [None]
  - Product use in unapproved indication [None]
